FAERS Safety Report 18652153 (Version 1)
Quarter: 2020Q4

REPORT INFORMATION
  Report Type: Spontaneous
  Country: JP (occurrence: JP)
  Receive Date: 20201222
  Receipt Date: 20201222
  Transmission Date: 20210114
  Serious: Yes (Death, Other)
  Sender: FDA-Public Use
  Company Number: JP-009507513-2012JPN001548J

PATIENT
  Age: 69 Year
  Sex: Male

DRUGS (3)
  1. TAZOPIPE [Concomitant]
     Active Substance: PIPERACILLIN SODIUM\TAZOBACTAM SODIUM
     Indication: FUNGAL INFECTION
     Dosage: 4.5 GRAM, TID
     Route: 041
     Dates: start: 20201020, end: 20201116
  2. NOXAFIL [Suspect]
     Active Substance: POSACONAZOLE
     Indication: FUNGAL INFECTION
     Dosage: 300 MILLIGRAM, QD
     Route: 048
     Dates: start: 20201029, end: 20201116
  3. AMBISOME [Concomitant]
     Active Substance: AMPHOTERICIN B
     Indication: FUNGAL INFECTION
     Dosage: UNK
     Route: 065
     Dates: start: 20201020, end: 2020

REACTIONS (2)
  - Aplastic anaemia [Fatal]
  - Product use issue [Unknown]

NARRATIVE: CASE EVENT DATE: 2020
